FAERS Safety Report 9167717 (Version 1)
Quarter: 2013Q1

REPORT INFORMATION
  Report Type: Spontaneous
  Country: US (occurrence: None)
  Receive Date: 20130304
  Receipt Date: 20130304
  Transmission Date: 20140127
  Serious: Yes (Life-Threatening, Hospitalization)
  Sender: FDA-Public Use
  Company Number: 2013AP003277

PATIENT
  Age: 47 Year
  Sex: Male

DRUGS (5)
  1. AZITHROMYCIN TABLETS [Suspect]
     Indication: UPPER RESPIRATORY TRACT INFECTION
  2. METHADONE [Suspect]
     Indication: DRUG DEPENDENCE
  3. HYDROCHLOROTHIAZIDE/LISINOPRIL [Concomitant]
  4. BENZONATATE [Concomitant]
  5. ACETAMINOHPEN, DEXTROMETHORPHAN HBR, DOXYLAMINE SUCCINATE [Concomitant]

REACTIONS (13)
  - Cardiac arrest [None]
  - Electrocardiogram QT prolonged [None]
  - Drug interaction [None]
  - Unresponsive to stimuli [None]
  - Cyanosis [None]
  - Lactic acidosis [None]
  - Hyperammonaemia [None]
  - Sinus tachycardia [None]
  - Pulse absent [None]
  - Nausea [None]
  - Palpitations [None]
  - Loss of consciousness [None]
  - Metabolic encephalopathy [None]
